FAERS Safety Report 18445086 (Version 1)
Quarter: 2020Q4

REPORT INFORMATION
  Report Type: Spontaneous
  Country: US (occurrence: US)
  Receive Date: 20201030
  Receipt Date: 20201030
  Transmission Date: 20210114
  Serious: No
  Sender: FDA-Public Use
  Company Number: US-JNJFOC-20201030643

PATIENT
  Sex: Male

DRUGS (1)
  1. ULTRAM [Suspect]
     Active Substance: TRAMADOL HYDROCHLORIDE
     Indication: PAIN
     Route: 048

REACTIONS (3)
  - Incorrect product administration duration [Unknown]
  - Therapeutic product effect decreased [Unknown]
  - Inappropriate schedule of product administration [Unknown]

NARRATIVE: CASE EVENT DATE: 20201019
